FAERS Safety Report 5974071-5 (Version None)
Quarter: 2008Q4

REPORT INFORMATION
  Report Type: 
  Country: None (occurrence: None)
  Receive Date: 20081201
  Receipt Date: 20080124
  Transmission Date: 20090506
  Serious: No
  Sender: FDA-Public Use
  Company Number: US-AMGEN-KDL262212

PATIENT
  Sex: Male

DRUGS (2)
  1. ENBREL [Suspect]
     Indication: RHEUMATOID ARTHRITIS
     Route: 058
     Dates: start: 20020701
  2. AMOXICILLIN + CLAVULANATE POTASSIUM [Concomitant]

REACTIONS (9)
  - CALCULUS URINARY [None]
  - DYSPNOEA [None]
  - INJECTION SITE ERYTHEMA [None]
  - INJECTION SITE HAEMORRHAGE [None]
  - INJECTION SITE PAIN [None]
  - NEPHROLITHIASIS [None]
  - PAIN [None]
  - RHEUMATOID ARTHRITIS [None]
  - TOOTH INFECTION [None]
